FAERS Safety Report 6807691-6 (Version None)
Quarter: 2010Q2

REPORT INFORMATION
  Report Type: 
  Country: None (occurrence: None)
  Receive Date: 20100629
  Receipt Date: 20081028
  Transmission Date: 20101027
  Serious: No
  Sender: FDA-Public Use
  Company Number: US-PFIZER INC-2008091567

PATIENT
  Sex: Male
  Weight: 68.2 kg

DRUGS (7)
  1. ARTHROTEC [Suspect]
     Indication: GOUT
     Dates: start: 20081023, end: 20081023
  2. DEPAKOTE [Concomitant]
  3. SEROQUEL [Concomitant]
  4. ROXICODONE [Concomitant]
  5. DURAGESIC-100 [Concomitant]
  6. COLCHICINE [Concomitant]
  7. INDOCIN [Concomitant]

REACTIONS (2)
  - MEDICATION ERROR [None]
  - THERAPEUTIC RESPONSE UNEXPECTED [None]
